FAERS Safety Report 10405496 (Version 1)
Quarter: 2014Q3

REPORT INFORMATION
  Report Type: Spontaneous
  Country: CN (occurrence: None)
  Receive Date: 20140820
  Receipt Date: 20140820
  Transmission Date: 20150326
  Serious: Yes (Other)
  Sender: FDA-Public Use
  Company Number: CN-20140017

PATIENT
  Age: 37 Year
  Sex: Male

DRUGS (2)
  1. PIRARUBICIN HYDROCHLORIDE (PIRARUBICIN HYDROCHLORIDE) (PIRARUBICIN HYDROCHLORIDE) [Concomitant]
  2. LIPIODOL [Suspect]
     Active Substance: ETHIODIZED OIL
     Indication: THERAPEUTIC EMBOLISATION
     Route: 013

REACTIONS (3)
  - Skin necrosis [None]
  - Off label use [None]
  - Impaired healing [None]
